FAERS Safety Report 19614048 (Version 1)
Quarter: 2021Q3

REPORT INFORMATION
  Report Type: Other
  Country: US (occurrence: US)
  Receive Date: 20210727
  Receipt Date: 20210727
  Transmission Date: 20211014
  Serious: Yes (Other)
  Sender: FDA-Public Use
  Company Number: US-INTERCEPT-PM2021002281

PATIENT
  Sex: Male

DRUGS (4)
  1. XTANDI [Concomitant]
     Active Substance: ENZALUTAMIDE
     Dosage: FOUR CAPSULES DAILY
  2. OCALIVA [Suspect]
     Active Substance: OBETICHOLIC ACID
     Indication: PRIMARY BILIARY CHOLANGITIS
     Dosage: 5 MILLIGRAM, QD
     Route: 048
     Dates: start: 20181213
  3. URSODIOL. [Concomitant]
     Active Substance: URSODIOL
  4. OCALIVA [Suspect]
     Active Substance: OBETICHOLIC ACID
     Dosage: 10 MILLIGRAM, QD
     Route: 048

REACTIONS (13)
  - Chromaturia [Unknown]
  - Eye operation [Unknown]
  - Skin papilloma [Recovered/Resolved]
  - Visual impairment [Unknown]
  - Therapy interrupted [Not Recovered/Not Resolved]
  - Dermatitis acneiform [Unknown]
  - Memory impairment [Unknown]
  - Inflammation [Unknown]
  - Yellow skin [Unknown]
  - Blood test abnormal [Unknown]
  - Eye ulcer [Unknown]
  - Hypersensitivity [Unknown]
  - Neoplasm malignant [Unknown]

NARRATIVE: CASE EVENT DATE: 2021
